FAERS Safety Report 4981756-6 (Version None)
Quarter: 2006Q2

REPORT INFORMATION
  Report Type: 
  Country: None (occurrence: None)
  Receive Date: 20060425
  Receipt Date: 20060413
  Transmission Date: 20061013
  Serious: Yes (Other)
  Sender: FDA-Public Use
  Company Number: PHFR2006GB01469

PATIENT

DRUGS (3)
  1. MYFORTIC [Suspect]
     Route: 065
     Dates: start: 20060410
  2. PREDNISOLONE [Concomitant]
  3. TACROLIMUS [Concomitant]

REACTIONS (2)
  - LYMPHADENOPATHY [None]
  - SWELLING FACE [None]
